FAERS Safety Report 22028550 (Version 1)
Quarter: 2023Q1

REPORT INFORMATION
  Report Type: Spontaneous
  Country: US (occurrence: None)
  Receive Date: 20230223
  Receipt Date: 20230223
  Transmission Date: 20230418
  Serious: No
  Sender: FDA-Public Use
  Company Number: US-ROCHE-3209995

PATIENT
  Sex: Male
  Weight: 12.894 kg

DRUGS (1)
  1. NUTROPIN AQ [Suspect]
     Active Substance: SOMATROPIN
     Indication: Growth hormone deficiency
     Dosage: ON 27/OCT/2022 HE WAS TAKEN LAST DOSE
     Route: 058
     Dates: start: 20210421, end: 20221027

REACTIONS (2)
  - Injection site swelling [Recovering/Resolving]
  - Multiple use of single-use product [Unknown]

NARRATIVE: CASE EVENT DATE: 20221026
